FAERS Safety Report 4379953-6 (Version None)
Quarter: 2004Q2

REPORT INFORMATION
  Report Type: 
  Country: None (occurrence: None)
  Receive Date: 20040614
  Receipt Date: 20040602
  Transmission Date: 20050107
  Serious: Yes (Disabling)
  Sender: FDA-Public Use
  Company Number: 04P-008-0262785-00

PATIENT
  Age: 16 Year
  Sex: Female

DRUGS (1)
  1. VALPROATE SODIUM [Suspect]
     Indication: SIMPLE PARTIAL SEIZURES
     Dosage: VARIABLE DOSE: 800-2000 MG, ORAL
     Route: 048
     Dates: start: 20030801

REACTIONS (1)
  - AKATHISIA [None]
